FAERS Safety Report 8319573 (Version 2)
Quarter: 2013Q4

REPORT INFORMATION
  Report Type: Spontaneous
  Country: US (occurrence: US)
  Receive Date: 20120103
  Receipt Date: 20131120
  Transmission Date: 20140711
  Serious: Yes (Other)
  Sender: FDA-Public Use
  Company Number: US-GLAXOSMITHKLINE-A0934724A

PATIENT
  Age: 49 Year
  Sex: Female
  Weight: 81.8 kg

DRUGS (1)
  1. AVANDIA [Suspect]
     Indication: DIABETES MELLITUS
     Dosage: 4MG PER DAY
     Route: 048
     Dates: start: 200409, end: 200502

REACTIONS (8)
  - Coronary artery disease [Unknown]
  - Cardiac failure congestive [Unknown]
  - Cardiac disorder [Unknown]
  - Myocardial infarction [Unknown]
  - Heart transplant [Unknown]
  - Congestive cardiomyopathy [Unknown]
  - Cardiac arrest [Unknown]
  - Pulmonary hypertension [Unknown]
